FAERS Safety Report 7525942-X (Version None)
Quarter: 2011Q2

REPORT INFORMATION
  Report Type: 
  Country: None (occurrence: None)
  Receive Date: 20110603
  Receipt Date: 20110603
  Transmission Date: 20111010
  Serious: Yes (Disabling)
  Sender: FDA-Public Use
  Company Number: None

PATIENT
  Sex: Female
  Weight: 73.9363 kg

DRUGS (1)
  1. HEMAX SR TABLETS. PRONOVA [Suspect]
     Indication: ANAEMIA OF MALIGNANT DISEASE
     Dosage: 1 PER DAY
     Dates: start: 20110328, end: 20110426

REACTIONS (1)
  - POSTURE ABNORMAL [None]
